FAERS Safety Report 7115743-9 (Version None)
Quarter: 2010Q4

REPORT INFORMATION
  Report Type: 
  Country: None (occurrence: None)
  Receive Date: 20101122
  Receipt Date: 20101115
  Transmission Date: 20110411
  Serious: Yes (Other)
  Sender: FDA-Public Use
  Company Number: CL-PFIZER INC-2010103951

PATIENT
  Age: 14 Year
  Sex: Male

DRUGS (1)
  1. GENOTONORM [Suspect]
     Dosage: UNK
     Dates: start: 20091101

REACTIONS (1)
  - MELANOCYTIC NAEVUS [None]
